FAERS Safety Report 4913025-4 (Version None)
Quarter: 2006Q1

REPORT INFORMATION
  Report Type: 
  Country: None (occurrence: None)
  Receive Date: 20060215
  Receipt Date: 20060202
  Transmission Date: 20060701
  Serious: Yes (Hospitalization)
  Sender: FDA-Public Use
  Company Number: PT-AMGEN-UK167795

PATIENT
  Sex: Female
  Weight: 53 kg

DRUGS (27)
  1. KEPIVANCE [Suspect]
     Indication: PROPHYLAXIS
     Route: 042
     Dates: start: 20060109
  2. EPOETIN BETA [Concomitant]
     Route: 058
  3. CYTARABINE [Concomitant]
     Route: 042
     Dates: start: 20060113
  4. AMOXICILLIN AND CLAVULANATE POTASSIUM [Concomitant]
     Route: 048
  5. BROMHEXINE [Concomitant]
     Route: 048
  6. ACETAMINOPHEN [Concomitant]
  7. CARMUSTINE [Concomitant]
     Route: 042
     Dates: start: 20060112
  8. ETOPOSIDE [Concomitant]
     Route: 042
     Dates: start: 20060113
  9. MELPHALAN [Concomitant]
     Route: 042
     Dates: start: 20060117
  10. SODIUM CHLORIDE [Concomitant]
     Route: 041
     Dates: start: 20060111
  11. GLUCOSE [Concomitant]
     Route: 041
     Dates: start: 20060111
  12. SODIUM BICARBONATE [Concomitant]
     Route: 042
     Dates: start: 20060111
  13. POTASSIUM CHLORIDE [Concomitant]
     Route: 042
     Dates: start: 20060111
  14. SUCRALFATE [Concomitant]
     Route: 048
     Dates: start: 20060112
  15. OMEPRAZOLE [Concomitant]
     Route: 042
     Dates: start: 20060112
  16. TROPISETRON [Concomitant]
     Route: 042
     Dates: start: 20060112
  17. MIDAZOLAM [Concomitant]
     Route: 042
     Dates: start: 20060112
  18. DEXAMETHASONE [Concomitant]
     Route: 042
     Dates: start: 20060112
  19. DEXAMETHASONE [Concomitant]
     Route: 031
     Dates: start: 20060112
  20. CHLORHEXIDINE [Concomitant]
     Route: 048
  21. FUROSEMIDE [Concomitant]
     Route: 042
  22. CLONIXIN [Concomitant]
  23. CLEMASTINE [Concomitant]
     Route: 042
  24. BROMAZEPAM [Concomitant]
  25. ACYCLOVIR SODIUM [Concomitant]
     Route: 048
  26. FILGRASTIM [Concomitant]
     Route: 042
  27. ITRACONAZOLE [Concomitant]
     Route: 048

REACTIONS (2)
  - DIARRHOEA [None]
  - RASH [None]
